FAERS Safety Report 4565321-0 (Version None)
Quarter: 2005Q1

REPORT INFORMATION
  Report Type: 
  Country: None (occurrence: None)
  Receive Date: 20050126
  Receipt Date: 20050107
  Transmission Date: 20050727
  Serious: Yes (Other)
  Sender: FDA-Public Use
  Company Number: US_0501110034

PATIENT
  Age: 66 Year
  Sex: Male

DRUGS (2)
  1. GEMCITABINE HYDROCHLORIDE                     (GEMCITABINE) [Suspect]
     Indication: B-CELL LYMPHOMA
     Dosage: 1000MG/M2 OTHER
     Route: 042
  2. RITUXIMAB [Concomitant]

REACTIONS (7)
  - DRUG TOXICITY [None]
  - HAEMATOTOXICITY [None]
  - OEDEMA PERIPHERAL [None]
  - PLATELET COUNT ABNORMAL [None]
  - PNEUMONIA [None]
  - RED BLOOD CELL COUNT ABNORMAL [None]
  - WHITE BLOOD CELL COUNT ABNORMAL [None]
